FAERS Safety Report 6606724-X (Version None)
Quarter: 2010Q1

REPORT INFORMATION
  Report Type: 
  Country: None (occurrence: None)
  Receive Date: 20100226
  Receipt Date: 20090203
  Transmission Date: 20100710
  Serious: No
  Sender: FDA-Public Use
  Company Number: US-ALLERGAN-0901252US

PATIENT
  Age: 42 Year
  Sex: Male

DRUGS (2)
  1. BOTOX COSMETIC [Suspect]
     Indication: SKIN WRINKLING
     Dosage: 20 UNITS, SINGLE
     Route: 030
     Dates: start: 20090116, end: 20090116
  2. BOTOX COSMETIC [Suspect]

REACTIONS (5)
  - ABDOMINAL PAIN LOWER [None]
  - DIZZINESS [None]
  - SINUSITIS [None]
  - TINNITUS [None]
  - VERTIGO [None]
